FAERS Safety Report 10774344 (Version 1)
Quarter: 2015Q1

REPORT INFORMATION
  Report Type: Spontaneous
  Country: IE (occurrence: IE)
  Receive Date: 20150209
  Receipt Date: 20150209
  Transmission Date: 20150721
  Serious: Yes (Hospitalization)
  Sender: FDA-Public Use
  Company Number: IE-ROCHE-1519368

PATIENT
  Sex: Female

DRUGS (4)
  1. LOSARTAN [Concomitant]
     Active Substance: LOSARTAN
  2. PACLITAXEL. [Concomitant]
     Active Substance: PACLITAXEL
  3. HERCEPTIN [Suspect]
     Active Substance: TRASTUZUMAB
     Indication: BREAST CANCER METASTATIC
     Route: 065
     Dates: start: 20090424, end: 20100423
  4. HERCEPTIN [Suspect]
     Active Substance: TRASTUZUMAB
     Route: 065
     Dates: start: 20131108, end: 20141114

REACTIONS (3)
  - Pollakiuria [Unknown]
  - Disease progression [Unknown]
  - Urinary tract infection [Unknown]
